FAERS Safety Report 6737590-X (Version None)
Quarter: 2010Q2

REPORT INFORMATION
  Report Type: 
  Country: None (occurrence: None)
  Receive Date: 20100524
  Receipt Date: 20100421
  Transmission Date: 20101027
  Serious: No
  Sender: FDA-Public Use
  Company Number: US-BAYER-201014636BCC

PATIENT
  Age: 77 Year
  Sex: Female
  Weight: 56 kg

DRUGS (6)
  1. ALEVE [Suspect]
     Indication: BACK PAIN
     Dosage: TOTAL DAILY DOSE: 660 MG  UNIT DOSE: 220 MG
     Route: 048
     Dates: start: 20100420
  2. VITAMIN E [Concomitant]
     Route: 065
  3. VITAMIN D [Concomitant]
     Route: 065
  4. FISH OIL [Concomitant]
     Route: 065
  5. CITRACAL [Concomitant]
     Route: 065
  6. SWANSON MULTIVITAMIN [Concomitant]
     Route: 065

REACTIONS (1)
  - BACK PAIN [None]
